FAERS Safety Report 21084652 (Version 7)
Quarter: 2022Q4

REPORT INFORMATION
  Report Type: Report from Study
  Country: US (occurrence: US)
  Receive Date: 20220714
  Receipt Date: 20221122
  Transmission Date: 20230113
  Serious: Yes (Disabling)
  Sender: FDA-Public Use
  Company Number: US-NOVARTISPH-NVSC2022US158780

PATIENT
  Sex: Male

DRUGS (2)
  1. COSENTYX [Suspect]
     Active Substance: SECUKINUMAB
     Indication: Psoriasis
     Dosage: 300 MG, QMO
     Route: 058
     Dates: end: 202204
  2. COSENTYX [Suspect]
     Active Substance: SECUKINUMAB
     Dosage: 300 MG, QMO
     Route: 058
     Dates: start: 20220913

REACTIONS (5)
  - Injury [Not Recovered/Not Resolved]
  - Pain [Recovered/Resolved]
  - Malaise [Unknown]
  - Rebound psoriasis [Not Recovered/Not Resolved]
  - Therapeutic product effect incomplete [Unknown]
